FAERS Safety Report 21188678 (Version 1)
Quarter: 2022Q3

REPORT INFORMATION
  Report Type: Spontaneous
  Country: US (occurrence: US)
  Receive Date: 20220809
  Receipt Date: 20220809
  Transmission Date: 20221027
  Serious: No
  Sender: FDA-Public Use
  Company Number: US-TEVA-2022-US-2060795

PATIENT
  Age: 51 Year
  Sex: Female

DRUGS (1)
  1. ETONOGESTREL/ETHINYL ESTRADIOL [Suspect]
     Active Substance: ETHINYL ESTRADIOL\ETONOGESTREL
     Indication: Contraception
     Dosage: 0.120 MG / 0.015 MG
     Route: 065

REACTIONS (2)
  - Discomfort [Unknown]
  - Device issue [Unknown]

NARRATIVE: CASE EVENT DATE: 20220724
